FAERS Safety Report 9094274 (Version 1)
Quarter: 2013Q1

REPORT INFORMATION
  Report Type: Spontaneous
  Country: FR (occurrence: FR)
  Receive Date: 20130201
  Receipt Date: 20130201
  Transmission Date: 20140127
  Serious: Yes (Hospitalization)
  Sender: FDA-Public Use
  Company Number: FR-PFIZER INC-2013035662

PATIENT
  Age: 88 Year
  Sex: Male

DRUGS (5)
  1. TAHOR [Suspect]
     Indication: HYPERCHOLESTEROLAEMIA
     Dosage: 10 MG, 1X/DAY
     Route: 048
     Dates: end: 20121113
  2. AMIODARONE [Suspect]
     Indication: ATRIAL FIBRILLATION
     Dosage: 200 MG, 1X/DAY
     Route: 048
     Dates: end: 20121113
  3. DOLIPRANE [Concomitant]
     Indication: PAIN
     Dosage: 1000 MG, 1X/DAY
     Route: 048
     Dates: start: 201209, end: 20121113
  4. XATRAL [Concomitant]
     Indication: URINARY RETENTION
     Dosage: 2.5 MG, 1X/DAY
     Route: 048
     Dates: start: 20121001
  5. FINASTERIDE [Concomitant]
     Indication: URINARY RETENTION
     Dosage: 5 MG, 1X/DAY
     Route: 048
     Dates: start: 20121001

REACTIONS (5)
  - Respiratory failure [Recovering/Resolving]
  - Interstitial lung disease [Recovering/Resolving]
  - Hepatitis cholestatic [Recovering/Resolving]
  - Cardiac failure acute [Recovering/Resolving]
  - Hypertensive crisis [Recovering/Resolving]
